FAERS Safety Report 13829364 (Version 1)
Quarter: 2017Q3

REPORT INFORMATION
  Report Type: Spontaneous
  Country: US (occurrence: US)
  Receive Date: 20170803
  Receipt Date: 20170803
  Transmission Date: 20171127
  Serious: Yes (Death, Hospitalization)
  Sender: FDA-Public Use
  Company Number: US-PFIZER INC-2017332840

PATIENT
  Age: 58 Year
  Sex: Female
  Weight: 75.75 kg

DRUGS (1)
  1. IBRANCE [Suspect]
     Active Substance: PALBOCICLIB
     Indication: BREAST CANCER METASTATIC
     Dosage: 75MG, CYCLIC (ONE CAPSULE EVERY DAY FOR 21 DAYS, HOLD FOR 7 DAYS, 28 DAY CYCLE)
     Route: 048
     Dates: start: 20170427, end: 201707

REACTIONS (6)
  - Electrolyte imbalance [Unknown]
  - Dehydration [Unknown]
  - Malaise [Unknown]
  - Nausea [Unknown]
  - Vomiting [Unknown]
  - Acute respiratory failure [Fatal]
